FAERS Safety Report 12266719 (Version 1)
Quarter: 2016Q2

REPORT INFORMATION
  Report Type: Spontaneous
  Country: GB (occurrence: GB)
  Receive Date: 20160414
  Receipt Date: 20160414
  Transmission Date: 20160815
  Serious: Yes (Other)
  Sender: FDA-Public Use
  Company Number: GB-SUN PHARMACEUTICAL INDUSTRIES LTD-2016RR-113374

PATIENT
  Age: 50 Year

DRUGS (3)
  1. CARBOPLATIN. [Suspect]
     Active Substance: CARBOPLATIN
     Indication: PANCREATIC NEUROENDOCRINE TUMOUR
     Dosage: UNK
     Route: 065
  2. TOPOTECAN [Suspect]
     Active Substance: TOPOTECAN\TOPOTECAN HYDROCHLORIDE
     Indication: PANCREATIC NEUROENDOCRINE TUMOUR
     Route: 065
  3. VEPESID [Suspect]
     Active Substance: ETOPOSIDE
     Indication: PANCREATIC NEUROENDOCRINE TUMOUR
     Route: 065

REACTIONS (2)
  - Product use issue [Unknown]
  - Malignant neoplasm progression [Unknown]

NARRATIVE: CASE EVENT DATE: 201211
